FAERS Safety Report 10215151 (Version 1)
Quarter: 2014Q2

REPORT INFORMATION
  Report Type: Spontaneous
  Country: FR (occurrence: FR)
  Receive Date: 20140603
  Receipt Date: 20140603
  Transmission Date: 20141212
  Serious: Yes (Hospitalization, Other)
  Sender: FDA-Public Use
  Company Number: ALCN2014FR003151

PATIENT
  Age: 70 Year
  Sex: Female

DRUGS (4)
  1. AZOPT [Suspect]
     Indication: GLAUCOMA
     Dosage: 1 GTT, BID
     Route: 047
  2. XALATAN [Suspect]
     Indication: GLAUCOMA
     Dosage: 1 DF, QD
     Route: 047
  3. DIAMOX//ACETAZOLAMIDE [Suspect]
     Indication: GLAUCOMA
     Dosage: 1 DF, TID
  4. LEVOTHYROX [Concomitant]
     Dosage: 1 DF, QD

REACTIONS (12)
  - Chest pain [Unknown]
  - Blood pressure increased [Unknown]
  - Chromatopsia [Not Recovered/Not Resolved]
  - Intraocular pressure increased [Unknown]
  - Labile blood pressure [Not Recovered/Not Resolved]
  - Dizziness [Not Recovered/Not Resolved]
  - Drug ineffective [Unknown]
  - Alopecia [Not Recovered/Not Resolved]
  - Dyspnoea [Not Recovered/Not Resolved]
  - Cough [Recovered/Resolved]
  - Photopsia [Not Recovered/Not Resolved]
  - Fall [None]
